FAERS Safety Report 7487250-5 (Version None)
Quarter: 2011Q2

REPORT INFORMATION
  Report Type: 
  Country: None (occurrence: None)
  Receive Date: 20110518
  Receipt Date: 20101230
  Transmission Date: 20111010
  Serious: Yes (Hospitalization, Other)
  Sender: FDA-Public Use
  Company Number: US-BAYER-201032095NA

PATIENT
  Sex: Female
  Weight: 65.76 kg

DRUGS (5)
  1. YASMIN [Suspect]
     Indication: PRODUCT USED FOR UNKNOWN INDICATION
     Route: 048
  2. FLEXERIL [Concomitant]
     Dosage: UNK
     Dates: start: 20070225
  3. VICODIN [Concomitant]
     Dosage: UNK
     Dates: start: 20070225
  4. MORPHINE [Concomitant]
     Indication: PAIN
     Dosage: UNK
     Dates: start: 20070225
  5. TORADOL [Concomitant]
     Indication: PAIN
     Dosage: UNK
     Dates: start: 20070225

REACTIONS (4)
  - PULMONARY EMBOLISM [None]
  - HYPOTENSION [None]
  - COAGULOPATHY [None]
  - PLEURITIC PAIN [None]
